FAERS Safety Report 6362543-3 (Version None)
Quarter: 2009Q3

REPORT INFORMATION
  Report Type: 
  Country: None (occurrence: None)
  Receive Date: 20090918
  Receipt Date: 20090604
  Transmission Date: 20100115
  Serious: No
  Sender: FDA-Public Use
  Company Number: US-ABBOTT-09P-163-0578031-00

PATIENT
  Sex: Female
  Weight: 113.05 kg

DRUGS (1)
  1. HUMIRA [Suspect]
     Indication: RHEUMATOID ARTHRITIS
     Dates: start: 20090518

REACTIONS (2)
  - FUNGAL INFECTION [None]
  - INJECTION SITE IRRITATION [None]
